FAERS Safety Report 5089369-5 (Version None)
Quarter: 2006Q3

REPORT INFORMATION
  Report Type: 
  Country: None (occurrence: None)
  Receive Date: 20060822
  Receipt Date: 20060801
  Transmission Date: 20061208
  Serious: Yes (Life-Threatening, Hospitalization)
  Sender: FDA-Public Use
  Company Number: US200608000360

PATIENT
  Age: 75 Year
  Sex: Female

DRUGS (3)
  1. FORTEO [Suspect]
  2. FORTEO [Concomitant]
  3. CELEBREX [Concomitant]

REACTIONS (1)
  - ANAPHYLACTIC SHOCK [None]
